FAERS Safety Report 7381886-8 (Version None)
Quarter: 2011Q1

REPORT INFORMATION
  Report Type: 
  Country: None (occurrence: None)
  Receive Date: 20110329
  Receipt Date: 20110318
  Transmission Date: 20110831
  Serious: Yes (Hospitalization, Other)
  Sender: FDA-Public Use
  Company Number: JP-CELGENEUS-087-21880-11020011

PATIENT
  Sex: Male
  Weight: 62.2 kg

DRUGS (20)
  1. REVLIMID [Suspect]
     Dosage: 10 MILLIGRAM
     Route: 048
     Dates: start: 20110125, end: 20110203
  2. LENADEX [Suspect]
     Dosage: 40 MILLIGRAM
     Route: 048
     Dates: start: 20101217, end: 20101217
  3. BERBERON [Concomitant]
     Route: 048
     Dates: start: 20101209
  4. SLOW-K [Concomitant]
     Indication: PROPHYLAXIS
     Dosage: 600 MILLIGRAM
     Route: 048
     Dates: start: 20101209
  5. FLUNASE [Concomitant]
     Route: 045
     Dates: start: 20101209
  6. REVLIMID [Suspect]
     Dosage: 10 MILLIGRAM
     Route: 048
     Dates: start: 20110104, end: 20110113
  7. LENADEX [Suspect]
     Indication: MULTIPLE MYELOMA
     Dosage: 40 MILLIGRAM
     Route: 048
     Dates: start: 20101209, end: 20101212
  8. LANSOPRAZOLE [Concomitant]
     Indication: PROPHYLAXIS
     Dosage: 15 MILLIGRAM
     Route: 048
     Dates: start: 20101209
  9. REBAMIPIDE [Concomitant]
     Indication: PROPHYLAXIS
     Dosage: 300 MILLIGRAM
     Route: 048
     Dates: start: 20101209
  10. SHAKUYAKU-KANZO-TO [Concomitant]
     Indication: PROPHYLAXIS
     Dosage: 2 GRAM
     Route: 048
     Dates: start: 20101210, end: 20101217
  11. LASIX [Concomitant]
     Dosage: 40 MILLIGRAM
     Route: 048
     Dates: start: 20101209
  12. FLUITRAN [Concomitant]
     Dosage: 2 MILLIGRAM
     Route: 048
     Dates: start: 20101209
  13. HIRUDOID [Concomitant]
     Route: 062
     Dates: start: 20101211
  14. DAIPHEN [Concomitant]
     Dosage: 1 TABLET
     Route: 048
     Dates: start: 20101220, end: 20101226
  15. ALLOZYM [Concomitant]
     Dosage: 200 MILLIGRAM
     Route: 048
     Dates: start: 20101209, end: 20101215
  16. URINORM [Concomitant]
     Dosage: 50 MILLIGRAM
     Route: 048
     Dates: start: 20101216, end: 20110103
  17. SELTOUCH [Concomitant]
     Indication: MULTIPLE MYELOMA
     Route: 062
     Dates: start: 20101228
  18. REVLIMID [Suspect]
     Indication: MULTIPLE MYELOMA
     Dosage: 10 MILLIGRAM
     Route: 048
     Dates: start: 20101209, end: 20101229
  19. PLETAL [Concomitant]
     Dosage: 200 MILLIGRAM
     Route: 048
     Dates: start: 20101209
  20. PRIMPERAN TAB [Concomitant]
     Indication: PROPHYLAXIS
     Dosage: 15 GRAM
     Route: 048
     Dates: start: 20101210, end: 20101217

REACTIONS (3)
  - CARDIAC FAILURE [None]
  - THROMBOCYTOPENIA [None]
  - DELIRIUM [None]
